FAERS Safety Report 21501588 (Version 3)
Quarter: 2023Q1

REPORT INFORMATION
  Report Type: Spontaneous
  Country: CN (occurrence: None)
  Receive Date: 20221025
  Receipt Date: 20230210
  Transmission Date: 20230417
  Serious: Yes (Other)
  Sender: FDA-Public Use
  Company Number: CN-ROCHE-3204805

PATIENT
  Age: 58 Year
  Sex: Female

DRUGS (8)
  1. HERCEPTIN [Suspect]
     Active Substance: TRASTUZUMAB
     Indication: Breast cancer metastatic
     Dosage: FOR 4 CYCLES
     Route: 065
     Dates: start: 202105, end: 202108
  2. HERCEPTIN [Suspect]
     Active Substance: TRASTUZUMAB
     Dosage: WITH PERTUZUMAB
     Route: 065
  3. PERJETA [Suspect]
     Active Substance: PERTUZUMAB
     Indication: Breast cancer metastatic
     Dosage: FOR 4 CYCLES
     Route: 065
     Dates: start: 202105, end: 202108
  4. PERJETA [Suspect]
     Active Substance: PERTUZUMAB
     Dosage: WITH TRASTUZUMAB
     Route: 065
  5. XELODA [Suspect]
     Active Substance: CAPECITABINE
     Indication: Breast cancer metastatic
     Route: 048
     Dates: start: 20220901, end: 202210
  6. DOCETAXEL [Concomitant]
     Active Substance: DOCETAXEL
     Indication: Breast cancer metastatic
     Dosage: FOR 4 CYCLES
     Route: 065
     Dates: start: 202105, end: 202108
  7. PYROTINIB [Concomitant]
     Active Substance: PYROTINIB
     Indication: Breast cancer metastatic
     Route: 065
     Dates: start: 20220901, end: 202210
  8. CARBOPLATIN [Concomitant]
     Active Substance: CARBOPLATIN
     Indication: Breast cancer metastatic
     Dosage: FOR 4 CYCLES
     Route: 065
     Dates: start: 202105, end: 202108

REACTIONS (1)
  - Gastrointestinal disorder [Recovering/Resolving]
